FAERS Safety Report 6683263-1 (Version None)
Quarter: 2010Q2

REPORT INFORMATION
  Report Type: 
  Country: None (occurrence: None)
  Receive Date: 20100415
  Receipt Date: 20100408
  Transmission Date: 20101027
  Serious: Yes (Other)
  Sender: FDA-Public Use
  Company Number: US-JNJFOC-20080704185

PATIENT
  Sex: Male
  Weight: 113.4 kg

DRUGS (7)
  1. RISPERDAL [Suspect]
     Indication: BIPOLAR DISORDER
     Route: 048
  2. RISPERDAL M TAB [Suspect]
     Indication: BIPOLAR I DISORDER
     Route: 048
  3. SEROQUEL [Suspect]
     Indication: BIPOLAR DISORDER
     Route: 065
  4. LEXAPRO [Concomitant]
     Indication: BIPOLAR I DISORDER
     Route: 065
  5. LAMICTAL [Concomitant]
     Indication: BIPOLAR I DISORDER
     Route: 065
  6. ABILIFY [Concomitant]
     Route: 065
  7. STELAZINE [Concomitant]
     Route: 065

REACTIONS (4)
  - DYSPHAGIA [None]
  - SPEECH DISORDER [None]
  - TARDIVE DYSKINESIA [None]
  - THROAT TIGHTNESS [None]
